FAERS Safety Report 6958596-1 (Version None)
Quarter: 2010Q3

REPORT INFORMATION
  Report Type: 
  Country: None (occurrence: None)
  Receive Date: 20100831
  Receipt Date: 20100823
  Transmission Date: 20110219
  Serious: No
  Sender: FDA-Public Use
  Company Number: US-US-EMD SERONO, INC.-7011715

PATIENT
  Sex: Female
  Weight: 54 kg

DRUGS (15)
  1. REBIF [Suspect]
     Indication: MULTIPLE SCLEROSIS
     Route: 058
     Dates: start: 20090904
  2. PROVIGIL [Concomitant]
     Indication: MULTIPLE SCLEROSIS
  3. ARTANE [Concomitant]
     Indication: MULTIPLE SCLEROSIS
  4. VERAPAMIL [Concomitant]
     Indication: MIGRAINE
  5. PLAQUENIL [Concomitant]
     Indication: SJOGREN'S SYNDROME
  6. BACLOFEN [Concomitant]
     Indication: MULTIPLE SCLEROSIS
  7. MACRODANTIN [Concomitant]
  8. CYMBALTA [Concomitant]
  9. PANTOPRAZOLE [Concomitant]
  10. PREMARIN [Concomitant]
  11. RESTASIS [Concomitant]
     Indication: DRY EYE
  12. ZOFRAN GENERIC [Concomitant]
     Indication: NAUSEA
  13. MAXALT [Concomitant]
     Indication: MIGRAINE
  14. ARICEPT [Concomitant]
     Indication: MULTIPLE SCLEROSIS
     Dates: start: 20100101
  15. TOPAMAX [Concomitant]
     Indication: MIGRAINE

REACTIONS (3)
  - BREAST CANCER IN SITU [None]
  - PLATELET DISORDER [None]
  - VITAMIN D DECREASED [None]
